FAERS Safety Report 9881227 (Version 1)
Quarter: 2014Q1

REPORT INFORMATION
  Report Type: Spontaneous
  Country: US (occurrence: None)
  Receive Date: 20140205
  Receipt Date: 20140205
  Transmission Date: 20141002
  Serious: Yes (Death)
  Sender: FDA-Public Use
  Company Number: IMP_07236_2014

PATIENT
  Age: 34 Year
  Sex: Female

DRUGS (7)
  1. ALPRAZOLAM [Suspect]
     Indication: PRODUCT USED FOR UNKNOWN INDICATION
     Dosage: DF ORAL
     Route: 048
  2. METHADONE [Suspect]
     Indication: PRODUCT USED FOR UNKNOWN INDICATION
     Dosage: DF ORAL
     Route: 048
  3. MORPHINE [Suspect]
     Indication: DRUG ABUSE
     Dosage: DF ORAL
     Route: 048
  4. DIAZEPAM [Suspect]
     Route: 048
  5. MORPHINE [Suspect]
     Indication: DRUG ABUSE
     Dosage: DF PO
     Route: 048
  6. DIAZEPAM [Suspect]
     Indication: PRODUCT USED FOR UNKNOWN INDICATION
     Dosage: DF ORAL
     Route: 048
  7. ETHANOL [Suspect]
     Route: 048

REACTIONS (1)
  - Intentional drug misuse [None]
